FAERS Safety Report 7007326-6 (Version None)
Quarter: 2010Q3

REPORT INFORMATION
  Report Type: 
  Country: None (occurrence: None)
  Receive Date: 20100922
  Receipt Date: 20100914
  Transmission Date: 20110219
  Serious: Yes (Other)
  Sender: FDA-Public Use
  Company Number: US-WYE-H17507010

PATIENT
  Age: 33 Year
  Sex: Male
  Weight: 81.72 kg

DRUGS (4)
  1. ROBITUSSIN NIGHT TIME COUGH COLD AND FLU [Suspect]
     Indication: COUGH
     Dosage: 4 TEASPOONFULS 1 TIME
     Route: 048
     Dates: start: 20100801, end: 20100801
  2. ROBITUSSIN NIGHT TIME COUGH COLD AND FLU [Suspect]
     Indication: NASAL CONGESTION
  3. FINASTERIDE [Concomitant]
     Indication: PRODUCT USED FOR UNKNOWN INDICATION
     Dosage: UNKNOWN
     Route: 048
  4. NEXIUM [Concomitant]
     Indication: PRODUCT USED FOR UNKNOWN INDICATION
     Dosage: UNKNOWN
     Route: 048

REACTIONS (1)
  - CONVULSION [None]
